FAERS Safety Report 4322229-3 (Version None)
Quarter: 2004Q1

REPORT INFORMATION
  Report Type: 
  Country: None (occurrence: None)
  Receive Date: 20040319
  Receipt Date: 20040304
  Transmission Date: 20041129
  Serious: Yes (Hospitalization, Other)
  Sender: FDA-Public Use
  Company Number: 2004US000172

PATIENT
  Age: 62 Year
  Sex: Male
  Weight: 96.6 kg

DRUGS (8)
  1. ADENOSCAN [Suspect]
     Indication: SCAN MYOCARDIAL PERFUSION
     Dosage: 53.50MG, TOTAL DOSE; INTRAVENOUS
     Route: 042
     Dates: start: 20040211
  2. ATENOLOL [Concomitant]
  3. OXYBUTYNIN [Concomitant]
  4. FELODIPINE [Concomitant]
  5. RANITIDINE [Concomitant]
  6. FINASTERIDE [Concomitant]
  7. LIPITOR [Concomitant]
  8. ASPIRIN [Concomitant]

REACTIONS (5)
  - ATRIAL FIBRILLATION [None]
  - ATRIOVENTRICULAR BLOCK COMPLETE [None]
  - FEELING ABNORMAL [None]
  - LOSS OF CONSCIOUSNESS [None]
  - SYNCOPE [None]
